FAERS Safety Report 7266359-5 (Version None)
Quarter: 2011Q1

REPORT INFORMATION
  Report Type: 
  Country: None (occurrence: None)
  Receive Date: 20110131
  Receipt Date: 20110126
  Transmission Date: 20110831
  Serious: Yes (Other)
  Sender: FDA-Public Use
  Company Number: US-PFIZER INC-2011019089

PATIENT
  Sex: Male
  Weight: 88.435 kg

DRUGS (2)
  1. TYLENOL-500 [Concomitant]
     Dosage: 800 MG, UNK
  2. ADVIL LIQUI-GELS [Suspect]
     Indication: TOOTHACHE
     Dosage: 200 MG, UNK
     Route: 048
     Dates: start: 20110125

REACTIONS (3)
  - OVERDOSE [None]
  - HAEMATOCHEZIA [None]
  - TOOTHACHE [None]
